FAERS Safety Report 6387676-7 (Version None)
Quarter: 2009Q4

REPORT INFORMATION
  Report Type: 
  Country: None (occurrence: None)
  Receive Date: 20091005
  Receipt Date: 20090925
  Transmission Date: 20100525
  Serious: Yes (Hospitalization)
  Sender: FDA-Public Use
  Company Number: PHHO2009US10734

PATIENT
  Sex: Male
  Weight: 110 kg

DRUGS (7)
  1. RAD 666 RAD+TAB [Suspect]
     Indication: RENAL TRANSPLANT
     Dosage: 3 MG /DAY
     Route: 048
     Dates: start: 20040714
  2. ALLOPURINOL [Concomitant]
     Indication: GOUT
     Dosage: 100 MG, QD
     Route: 048
     Dates: start: 20090723
  3. CARDURA [Concomitant]
     Indication: BLOOD PRESSURE
     Dosage: 2 MG, QD
     Route: 048
     Dates: start: 20090728
  4. TOPROL-XL [Concomitant]
     Indication: BLOOD PRESSURE
     Dosage: 25 MG, QD
     Route: 048
     Dates: start: 20090728
  5. NORVASC [Concomitant]
     Indication: BLOOD PRESSURE
     Dosage: 5 MG, QD
     Route: 048
     Dates: start: 20090122
  6. AMIODARONE [Concomitant]
     Indication: ARRHYTHMIA
     Dosage: 400 MG, QD
     Route: 048
     Dates: start: 20090728
  7. VYTORIN [Concomitant]
     Indication: BLOOD CHOLESTEROL
     Dosage: 10-40 MG/DAY
     Route: 048
     Dates: start: 20090722

REACTIONS (10)
  - ATRIAL FIBRILLATION [None]
  - CARDIAC TAMPONADE [None]
  - CARDIOMEGALY [None]
  - OEDEMA PERIPHERAL [None]
  - PERICARDIAL DRAINAGE [None]
  - PERICARDIAL EFFUSION [None]
  - PERICARDIOTOMY [None]
  - RENAL IMPAIRMENT [None]
  - TENDERNESS [None]
  - THORACOTOMY [None]
